FAERS Safety Report 7118179-X (Version None)
Quarter: 2010Q4

REPORT INFORMATION
  Report Type: 
  Country: None (occurrence: None)
  Receive Date: 20101123
  Receipt Date: 20101116
  Transmission Date: 20110411
  Serious: Yes (Other)
  Sender: FDA-Public Use
  Company Number: CL-BRISTOL-MYERS SQUIBB COMPANY-15333859

PATIENT
  Age: 68 Year
  Sex: Male
  Weight: 79 kg

DRUGS (3)
  1. CETUXIMAB [Suspect]
     Indication: GASTROOESOPHAGEAL CANCER
     Dosage: MOST RECENT INFUSION ON 29SEP10. NO OF INF:6 INTER ON 6OCT2010 DURATION:42 DAYS
     Route: 042
     Dates: start: 20100825
  2. CISPLATIN [Suspect]
     Indication: GASTROOESOPHAGEAL CANCER
     Dosage: ON DAY 1 OF CYCLE.MOST RECENT INFUSION ON15SEP10. INTER ON 6OCT2010 DURATION:42 DAYS
     Route: 042
     Dates: start: 20100825
  3. XELODA [Suspect]
     Indication: GASTROOESOPHAGEAL CANCER
     Dosage: ON DAY 1-15.MOST RECENT DOSE ON 29SEP10. INTER ON 6OCT2010 DURATION:42 DAYS
     Route: 048
     Dates: start: 20100825

REACTIONS (1)
  - PULMONARY EMBOLISM [None]
